FAERS Safety Report 20021472 (Version 2)
Quarter: 2021Q4

REPORT INFORMATION
  Report Type: Report from Study
  Country: US (occurrence: US)
  Receive Date: 20211101
  Receipt Date: 20211111
  Transmission Date: 20220303
  Serious: Yes (Hospitalization, Other)
  Sender: FDA-Public Use
  Company Number: US-JAZZ-2021-US-004710

PATIENT
  Sex: Female

DRUGS (2)
  1. XYWAV [Suspect]
     Active Substance: CALCIUM OXYBATE\MAGNESIUM OXYBATE\POTASSIUM OXYBATE\SODIUM OXYBATE
     Indication: Narcolepsy
     Dosage: 2.25 GRAM, BID
     Route: 048
     Dates: start: 202103, end: 202103
  2. XYWAV [Suspect]
     Active Substance: CALCIUM OXYBATE\MAGNESIUM OXYBATE\POTASSIUM OXYBATE\SODIUM OXYBATE
     Dosage: 3 GRAM, BID
     Route: 048
     Dates: start: 202103

REACTIONS (12)
  - Anxiety [Recovering/Resolving]
  - Narcolepsy [Unknown]
  - Thirst [Not Recovered/Not Resolved]
  - Contusion [Unknown]
  - Fibromyalgia [Unknown]
  - Headache [Not Recovered/Not Resolved]
  - Vomiting [Recovering/Resolving]
  - Nausea [Recovering/Resolving]
  - Diarrhoea [Recovering/Resolving]
  - Paranoia [Unknown]
  - Tremor [Not Recovered/Not Resolved]
  - Panic attack [Unknown]

NARRATIVE: CASE EVENT DATE: 20210101
